FAERS Safety Report 10310789 (Version 1)
Quarter: 2014Q3

REPORT INFORMATION
  Report Type: Spontaneous
  Country: US (occurrence: US)
  Receive Date: 20140717
  Receipt Date: 20140717
  Transmission Date: 20150326
  Serious: Yes (Other)
  Sender: FDA-Public Use
  Company Number: US-CUBIST PHARMACEUTICAL, INC.-2014CBST001031

PATIENT

DRUGS (5)
  1. UNKNOWN OTC [Concomitant]
     Active Substance: UNSPECIFIED INGREDIENT
     Indication: NAUSEA
     Dosage: UNK, UNK
     Route: 065
  2. DICLOFENAC [Concomitant]
     Active Substance: DICLOFENAC
     Indication: INFLAMMATION
     Dosage: 75 MG, UNK
     Route: 048
  3. CUBICIN [Suspect]
     Active Substance: DAPTOMYCIN
     Indication: ABSCESS
     Dosage: 7.7 MG/KG, QD
     Route: 040
     Dates: start: 20140621
  4. OXYCODONE WITH APAP [Concomitant]
     Indication: PAIN
     Dosage: 10/325MG , UP TO 6X/DAY
     Route: 048
  5. CUBICIN [Suspect]
     Active Substance: DAPTOMYCIN
     Dosage: 300 MG, QD
     Route: 040
     Dates: start: 20140621

REACTIONS (8)
  - Feeling of body temperature change [Not Recovered/Not Resolved]
  - Neurological symptom [Not Recovered/Not Resolved]
  - Hypoaesthesia [Not Recovered/Not Resolved]
  - Asthenia [Not Recovered/Not Resolved]
  - Weight decreased [Not Recovered/Not Resolved]
  - Feeling abnormal [Not Recovered/Not Resolved]
  - Skin burning sensation [Not Recovered/Not Resolved]
  - Paraesthesia [Not Recovered/Not Resolved]
